FAERS Safety Report 13405950 (Version 1)
Quarter: 2017Q2

REPORT INFORMATION
  Report Type: Spontaneous
  Country: US (occurrence: US)
  Receive Date: 20170405
  Receipt Date: 20170405
  Transmission Date: 20170830
  Serious: No
  Sender: FDA-Public Use
  Company Number: US-GLAXOSMITHKLINE-US2017047445

PATIENT
  Sex: Male

DRUGS (1)
  1. TANZEUM [Suspect]
     Active Substance: ALBIGLUTIDE
     Indication: PRODUCT USED FOR UNKNOWN INDICATION
     Dosage: 50 MG, UNK

REACTIONS (7)
  - Weight decreased [Unknown]
  - Pruritus [Unknown]
  - Musculoskeletal discomfort [Unknown]
  - Product label confusion [Unknown]
  - Initial insomnia [Unknown]
  - Wrong technique in device usage process [Unknown]
  - Inappropriate schedule of drug administration [Unknown]
